FAERS Safety Report 25841248 (Version 1)
Quarter: 2025Q3

REPORT INFORMATION
  Report Type: Report from Study
  Country: PH (occurrence: PH)
  Receive Date: 20250924
  Receipt Date: 20250924
  Transmission Date: 20251020
  Serious: Yes (Death, Other)
  Sender: OTSUKA
  Company Number: PH-MMM-Otsuka-HZWIPE2M

PATIENT

DRUGS (2)
  1. TOLVAPTAN [Suspect]
     Active Substance: TOLVAPTAN
     Indication: Oedema
     Dosage: 0.5 DF, TIW (15 MG HALF TABLET A DAY AFTER BREAKFAST 3 TIMES EVERY MONDAY, WEDNESDAY, AND FRIDAY)
     Route: 048
     Dates: start: 20250602, end: 20250816
  2. BUMETANIDE [Concomitant]
     Active Substance: BUMETANIDE
     Indication: Oedema
     Route: 065

REACTIONS (7)
  - Nephropathy [Fatal]
  - Respiratory failure [Fatal]
  - Diabetes mellitus [Fatal]
  - Dialysis [Unknown]
  - Wrong technique in product usage process [Unknown]
  - Inappropriate schedule of product administration [Unknown]
  - Underdose [Unknown]

NARRATIVE: CASE EVENT DATE: 20250602
